FAERS Safety Report 24314717 (Version 1)
Quarter: 2024Q3

REPORT INFORMATION
  Report Type: Other
  Country: HN (occurrence: HN)
  Receive Date: 20240913
  Receipt Date: 20240913
  Transmission Date: 20241017
  Serious: No
  Sender: TOLMAR
  Company Number: HN-TOLMAR, INC.-24HN052042

PATIENT
  Age: 7 Year
  Sex: Female

DRUGS (2)
  1. ELIGARD [Suspect]
     Active Substance: LEUPROLIDE ACETATE
     Indication: Precocious puberty
     Dosage: 45 MILLIGRAM, Q 6 MONTH
     Route: 058
     Dates: start: 20240801
  2. ELIGARD [Suspect]
     Active Substance: LEUPROLIDE ACETATE
     Indication: Precocious puberty
     Dosage: UNK

REACTIONS (1)
  - Acne [Recovering/Resolving]

NARRATIVE: CASE EVENT DATE: 20240816
